FAERS Safety Report 23664820 (Version 1)
Quarter: 2024Q1

REPORT INFORMATION
  Report Type: Spontaneous
  Country: GB (occurrence: GB)
  Receive Date: 20240322
  Receipt Date: 20240322
  Transmission Date: 20240409
  Serious: Yes (Death, Other)
  Sender: FDA-Public Use
  Company Number: GB-BIOVITRUM-2024-GB-004673

PATIENT
  Age: 60 Year
  Sex: Male

DRUGS (1)
  1. ANAKINRA [Suspect]
     Active Substance: ANAKINRA
     Indication: Haemophagocytic lymphohistiocytosis

REACTIONS (5)
  - Off label use [Unknown]
  - Pseudomonal bacteraemia [Fatal]
  - Enterococcal bacteraemia [Fatal]
  - Human herpesvirus 6 infection reactivation [Fatal]
  - Infection [Fatal]
